FAERS Safety Report 9280549 (Version 1)
Quarter: 2013Q2

REPORT INFORMATION
  Report Type: Spontaneous
  Country: US (occurrence: None)
  Receive Date: 20130507
  Receipt Date: 20130507
  Transmission Date: 20140414
  Serious: Yes (Hospitalization)
  Sender: FDA-Public Use
  Company Number: None

PATIENT
  Sex: Female
  Weight: 68 kg

DRUGS (1)
  1. NTG DEEP CLEAN INVIG FOAM SCRUB [Suspect]
     Route: 061
     Dates: start: 201304, end: 20130415

REACTIONS (3)
  - Skin burning sensation [None]
  - Facial pain [None]
  - Blister [None]
